FAERS Safety Report 17115189 (Version 1)
Quarter: 2019Q4

REPORT INFORMATION
  Report Type: Spontaneous
  Country: US (occurrence: US)
  Receive Date: 20191205
  Receipt Date: 20191205
  Transmission Date: 20200122
  Serious: No
  Sender: FDA-Public Use
  Company Number: US-GW PHARMA-201911USGW4360

PATIENT

DRUGS (4)
  1. DEPAKOTE [Concomitant]
     Active Substance: DIVALPROEX SODIUM
     Indication: PRODUCT USED FOR UNKNOWN INDICATION
     Dosage: UNK
     Route: 065
  2. EPIDIOLEX [Suspect]
     Active Substance: CANNABIDIOL
     Indication: SEIZURE
     Dosage: UNK
     Route: 048
  3. EPIDIOLEX [Suspect]
     Active Substance: CANNABIDIOL
     Dosage: DOSE ESCALATED
     Route: 048
     Dates: end: 2019
  4. EPIDIOLEX [Suspect]
     Active Substance: CANNABIDIOL
     Dosage: VERY LOW AND SLOW TITRATING DOSE
     Route: 048
     Dates: start: 2019

REACTIONS (2)
  - Liver function test increased [Unknown]
  - Intentional product misuse [Unknown]

NARRATIVE: CASE EVENT DATE: 2019
